FAERS Safety Report 12638058 (Version 1)
Quarter: 2016Q3

REPORT INFORMATION
  Report Type: Report from Study
  Country: US (occurrence: US)
  Receive Date: 20160809
  Receipt Date: 20160809
  Transmission Date: 20161109
  Serious: No
  Sender: FDA-Public Use
  Company Number: US-SA-2016SA114144

PATIENT
  Age: 64 Year
  Sex: Male

DRUGS (2)
  1. PRALUENT [Suspect]
     Active Substance: ALIROCUMAB
     Indication: HYPERLIPIDAEMIA
     Route: 058
     Dates: start: 201604
  2. ALIROCUMAB PREFILLED PEN [Concomitant]
     Active Substance: ALIROCUMAB
     Dates: start: 201604

REACTIONS (7)
  - Joint stiffness [Recovering/Resolving]
  - Burning sensation [Recovering/Resolving]
  - Skin ulcer [Recovering/Resolving]
  - Joint swelling [Recovering/Resolving]
  - Arthralgia [Unknown]
  - Injection site pain [Recovering/Resolving]
  - Pruritus [Recovering/Resolving]
